FAERS Safety Report 4352171-3 (Version None)
Quarter: 2004Q2

REPORT INFORMATION
  Report Type: 
  Country: None (occurrence: None)
  Receive Date: 20040428
  Receipt Date: 20040419
  Transmission Date: 20050107
  Serious: Yes (Life-Threatening, Hospitalization)
  Sender: FDA-Public Use
  Company Number: 2004-02-0855

PATIENT
  Age: 20 Year
  Sex: Male

DRUGS (1)
  1. DIPROSPAN (BETAMETHASONE SODIUM PHOSPHATE/DIPROPIONA INJECTABLE SUSPEN [Suspect]
     Indication: BURSITIS
     Dosage: 5 MG INTRA-ARTICULAR
     Route: 014
     Dates: start: 20040205

REACTIONS (1)
  - ANAPHYLACTIC SHOCK [None]
